FAERS Safety Report 5217571-8 (Version None)
Quarter: 2007Q1

REPORT INFORMATION
  Report Type: 
  Country: None (occurrence: None)
  Receive Date: 20070124
  Receipt Date: 20060404
  Transmission Date: 20070707
  Serious: No
  Sender: FDA-Public Use
  Company Number: US-GLAXOSMITHKLINE-A0600341A

PATIENT
  Age: 36 Year
  Sex: Male

DRUGS (5)
  1. PAXIL CR [Suspect]
     Dosage: 62.5MG PER DAY
     Route: 048
     Dates: start: 20050101
  2. PAROXETINE HYDROCHLORIDE [Suspect]
     Route: 048
  3. ACIPHEX [Concomitant]
  4. BENICAR [Concomitant]
  5. PAXIL [Concomitant]
     Dosage: 40MG PER DAY
     Route: 048

REACTIONS (2)
  - DRUG INEFFECTIVE [None]
  - NAUSEA [None]
